FAERS Safety Report 5787787-0 (Version None)
Quarter: 2008Q2

REPORT INFORMATION
  Report Type: 
  Country: None (occurrence: None)
  Receive Date: 20080625
  Receipt Date: 20080612
  Transmission Date: 20081010
  Serious: Yes (Other)
  Sender: FDA-Public Use
  Company Number: PHHY2008GB11087

PATIENT
  Sex: Male

DRUGS (1)
  1. TEGRETOL [Suspect]
     Indication: EPILEPSY
     Dosage: 700 MG IN MORN + 600 MG IN EVENING
     Route: 048

REACTIONS (3)
  - AGGRESSION [None]
  - CONVULSION [None]
  - LEARNING DISORDER [None]
